FAERS Safety Report 9495922 (Version 3)
Quarter: 2013Q3

REPORT INFORMATION
  Report Type: Report from Study
  Country: CL (occurrence: CL)
  Receive Date: 20130903
  Receipt Date: 20130912
  Transmission Date: 20140515
  Serious: Yes (Hospitalization)
  Sender: FDA-Public Use
  Company Number: CL-009507513-1308CHL014713

PATIENT
  Age: 14 Year
  Sex: Female
  Weight: 43 kg

DRUGS (15)
  1. FOSAPREPITANT DIMEGLUMINE [Suspect]
     Indication: PROPHYLAXIS OF NAUSEA AND VOMITING
     Dosage: 150 MG, ONCE
     Route: 042
     Dates: start: 20130617, end: 20130617
  2. ONDANSETRON [Suspect]
     Indication: PROPHYLAXIS OF NAUSEA AND VOMITING
     Dosage: 0.15 MG/KG, TID DAY 1
     Route: 042
     Dates: start: 20130617, end: 20130617
  3. ONDANSETRON [Suspect]
     Dosage: 0.15 MG/KG, TID DAY 2
     Route: 042
     Dates: start: 20130618, end: 20130618
  4. ONDANSETRON [Suspect]
     Dosage: 0.15 MG/KG, TID DAY 3
     Route: 042
     Dates: start: 20130619, end: 20130619
  5. ONDANSETRON [Suspect]
     Dosage: 0.15 MG/KG, TID DAY 4
     Route: 042
     Dates: start: 20130620, end: 20130620
  6. ONDANSETRON [Suspect]
     Dosage: 0.15 MG/KG, TID DAY 5
     Route: 042
     Dates: start: 20130621, end: 20130621
  7. ONDANSETRON [Suspect]
     Dosage: 0.15 MG/KG, TID DAY 1
     Route: 042
     Dates: start: 20130821, end: 20130821
  8. FOSAPREPITANT DIMEGLUMINE [Suspect]
     Indication: PROPHYLAXIS OF NAUSEA AND VOMITING
     Dosage: UNK, ONCE
     Route: 042
     Dates: start: 20130710, end: 20130710
  9. FOSAPREPITANT DIMEGLUMINE [Suspect]
     Dosage: UNK, ONCE
     Route: 042
     Dates: start: 20130821, end: 20130821
  10. AMITRIPTYLINE HYDROCHLORIDE [Concomitant]
     Indication: TUMOUR PAIN
     Dosage: 25 MG, QD
     Route: 048
     Dates: start: 20130413
  11. OMEPRAZOLE [Concomitant]
     Indication: GASTRITIS PROPHYLAXIS
     Dosage: 20 MG, QD
     Route: 048
     Dates: start: 20130619
  12. FUSIDIC ACID [Concomitant]
     Indication: ANAL FISSURE
     Dosage: DAILY DOSE AS 4G, QID
     Route: 061
     Dates: start: 20130627
  13. RANITIDINE [Concomitant]
     Indication: GASTRIC DISORDER
     Dosage: 50 MG DAILY
     Dates: start: 20130821, end: 20130821
  14. RANITIDINE [Concomitant]
     Dosage: 45 MG DAILY
     Dates: start: 20130822, end: 20130826
  15. METHOTREXATE [Concomitant]
     Indication: CHEMOTHERAPY
     Dosage: 16.6 G DAILY, ONCE
     Route: 042
     Dates: start: 20130821, end: 20130821

REACTIONS (1)
  - Drug level increased [Recovered/Resolved]
